FAERS Safety Report 9282951 (Version 2)
Quarter: 2013Q2

REPORT INFORMATION
  Report Type: Spontaneous
  Country: IE (occurrence: IE)
  Receive Date: 20130510
  Receipt Date: 20130618
  Transmission Date: 20140414
  Serious: Yes (Other)
  Sender: FDA-Public Use
  Company Number: IE-009507513-1303IRL014232

PATIENT
  Age: 21 Year
  Sex: Female

DRUGS (1)
  1. IMPLANON NXT [Suspect]
     Indication: CONTRACEPTION
     Dosage: UNK
     Route: 059
     Dates: start: 20121127

REACTIONS (1)
  - Hyperhidrosis [Not Recovered/Not Resolved]
